FAERS Safety Report 5523583-7 (Version None)
Quarter: 2007Q4

REPORT INFORMATION
  Report Type: 
  Country: None (occurrence: None)
  Receive Date: 20071121
  Receipt Date: 20071114
  Transmission Date: 20080405
  Serious: Yes (Death)
  Sender: FDA-Public Use
  Company Number: US-SANOFI-SYNTHELABO-A03200705684

PATIENT
  Age: 53 Year
  Sex: Male
  Weight: 129.3 kg

DRUGS (6)
  1. OXALIPLATIN [Suspect]
     Route: 042
     Dates: start: 20070917, end: 20070917
  2. LEUCOVORIN CALCIUM [Suspect]
     Route: 042
     Dates: start: 20070917, end: 20070917
  3. LEUCOVORIN CALCIUM [Suspect]
     Route: 042
     Dates: start: 20070917, end: 20070917
  4. AVASTIN [Suspect]
     Route: 042
     Dates: start: 20070917, end: 20070917
  5. FLUOROURACIL [Suspect]
     Route: 040
     Dates: start: 20070917, end: 20070917
  6. FLUOROURACIL [Suspect]
     Dosage: 48 HOUR INFUSION
     Route: 042
     Dates: start: 20070917, end: 20070919

REACTIONS (1)
  - DEATH [None]
